FAERS Safety Report 8214654-5 (Version None)
Quarter: 2012Q1

REPORT INFORMATION
  Report Type: 
  Country: None (occurrence: None)
  Receive Date: 20120316
  Receipt Date: 20120302
  Transmission Date: 20120608
  Serious: Yes (Death)
  Sender: FDA-Public Use
  Company Number: AU-MYLANLABS-2012S1004722

PATIENT
  Age: 27 Year
  Sex: Male

DRUGS (3)
  1. ALPRAZOLAM [Suspect]
     Indication: INSOMNIA
     Dates: start: 20101010, end: 20101010
  2. PRISTIQ [Suspect]
     Route: 048
  3. MIRTAZAPINE [Suspect]

REACTIONS (1)
  - DEATH [None]
